FAERS Safety Report 13854764 (Version 1)
Quarter: 2017Q3

REPORT INFORMATION
  Report Type: Spontaneous
  Country: LB (occurrence: LB)
  Receive Date: 20170810
  Receipt Date: 20170810
  Transmission Date: 20171127
  Serious: Yes (Death)
  Sender: FDA-Public Use
  Company Number: LB-NOVOPROD-557235

PATIENT
  Sex: Female

DRUGS (1)
  1. TRESIBA [Suspect]
     Active Substance: INSULIN DEGLUDEC
     Indication: DIABETES MELLITUS
     Dosage: UNK
     Route: 065

REACTIONS (3)
  - Off label use [Unknown]
  - Exposure during pregnancy [Recovered/Resolved]
  - Foetal death [Fatal]
